FAERS Safety Report 11718190 (Version 1)
Quarter: 2015Q4

REPORT INFORMATION
  Report Type: Spontaneous
  Country: US (occurrence: None)
  Receive Date: 20151109
  Receipt Date: 20151109
  Transmission Date: 20160304
  Serious: Yes (Other)
  Sender: FDA-Public Use
  Company Number: None

PATIENT
  Age: 45 Year
  Sex: Female
  Weight: 88.45 kg

DRUGS (9)
  1. PHENERGAN [Concomitant]
     Active Substance: PROMETHAZINE HYDROCHLORIDE
  2. XANAX [Concomitant]
     Active Substance: ALPRAZOLAM
  3. GABAPENTIN. [Suspect]
     Active Substance: GABAPENTIN
     Indication: PARAESTHESIA
     Dosage: 1 PILL THREE TIMES DAILY TAKEN BY MOUTH
     Route: 048
     Dates: start: 20151015, end: 20151107
  4. GABAPENTIN. [Suspect]
     Active Substance: GABAPENTIN
     Indication: BURNING SENSATION
     Dosage: 1 PILL THREE TIMES DAILY TAKEN BY MOUTH
     Route: 048
     Dates: start: 20151015, end: 20151107
  5. METRONICS BLADDER PACEMAKER [Concomitant]
  6. ESTROGEN [Concomitant]
     Active Substance: ESTRONE\SUS SCROFA OVARY
  7. GABAPENTIN. [Suspect]
     Active Substance: GABAPENTIN
     Indication: NEUROPATHY PERIPHERAL
     Dosage: 1 PILL THREE TIMES DAILY TAKEN BY MOUTH
     Route: 048
     Dates: start: 20151015, end: 20151107
  8. CLONIDINE. [Concomitant]
     Active Substance: CLONIDINE
  9. VITAMIN D [Concomitant]
     Active Substance: CHOLECALCIFEROL

REACTIONS (4)
  - Hypertension [None]
  - Ear pain [None]
  - Bradycardia [None]
  - Chest pain [None]

NARRATIVE: CASE EVENT DATE: 20151107
